FAERS Safety Report 18117154 (Version 1)
Quarter: 2020Q3

REPORT INFORMATION
  Report Type: Spontaneous
  Country: US (occurrence: US)
  Receive Date: 20200805
  Receipt Date: 20200805
  Transmission Date: 20201103
  Serious: Yes (Hospitalization, Disabling, Other)
  Sender: FDA-Public Use
  Company Number: US-PURDUE-USA-2020-0159702

PATIENT
  Sex: Female

DRUGS (4)
  1. HEROIN [Suspect]
     Active Substance: DIAMORPHINE
     Indication: PRODUCT USED FOR UNKNOWN INDICATION
     Dosage: UNK
     Route: 065
  2. TRAMADOL. [Suspect]
     Active Substance: TRAMADOL
     Indication: PRODUCT USED FOR UNKNOWN INDICATION
     Dosage: UNK
     Route: 065
  3. OXYCODONE/ ACETAMINOPHEN TABLETS [Suspect]
     Active Substance: ACETAMINOPHEN\OXYCODONE HYDROCHLORIDE
     Indication: PRODUCT USED FOR UNKNOWN INDICATION
     Dosage: UNK
     Route: 048
  4. PERCOCET                           /00446701/ [Suspect]
     Active Substance: ACETAMINOPHEN\OXYCODONE HYDROCHLORIDE\OXYCODONE TEREPHTHALATE
     Indication: PRODUCT USED FOR UNKNOWN INDICATION
     Dosage: UNK
     Route: 065

REACTIONS (26)
  - Pathogen resistance [Unknown]
  - Chills [Unknown]
  - Haematochezia [Unknown]
  - Drug dependence [Unknown]
  - Abscess [Unknown]
  - Hyperhidrosis [Unknown]
  - Vomiting [Unknown]
  - Abdominal pain upper [Unknown]
  - Overdose [Unknown]
  - Depression [Unknown]
  - Dehydration [Unknown]
  - Self esteem decreased [Unknown]
  - Scar [Unknown]
  - Diarrhoea [Unknown]
  - Learning disability [Unknown]
  - Imprisonment [Unknown]
  - Anxiety [Unknown]
  - Restlessness [Unknown]
  - Mood swings [Unknown]
  - Formication [Unknown]
  - Fatigue [Unknown]
  - Hot flush [Unknown]
  - Insomnia [Unknown]
  - Hepatitis C [Unknown]
  - Infection [Unknown]
  - Pain [Unknown]
